FAERS Safety Report 20916682 (Version 1)
Quarter: 2022Q2

REPORT INFORMATION
  Report Type: Spontaneous
  Country: US (occurrence: US)
  Receive Date: 20220605
  Receipt Date: 20220605
  Transmission Date: 20220720
  Serious: No
  Sender: FDA-Public Use
  Company Number: US-ANIPHARMA-2022-US-003702

PATIENT
  Age: 67 Year
  Sex: Female
  Weight: 72.58 kg

DRUGS (3)
  1. OXYCODONE HYDROCHLORIDE ORAL SOLUTION [Suspect]
     Active Substance: OXYCODONE HYDROCHLORIDE
     Indication: Arthralgia
     Dosage: AS NEEDED
     Dates: start: 20220122
  2. UNSPECIFIED COMPOUNDED THYROID MEDICATION [Concomitant]
     Dosage: UNKNOWN
  3. UNSPECIFIED COMPOUNDED HORMONE MEDICATION [Concomitant]
     Dosage: UNKNOWN

REACTIONS (2)
  - Eructation [Not Recovered/Not Resolved]
  - Flatulence [Not Recovered/Not Resolved]

NARRATIVE: CASE EVENT DATE: 20220122
